FAERS Safety Report 9921433 (Version 1)
Quarter: 2014Q1

REPORT INFORMATION
  Report Type: Spontaneous
  Country: US (occurrence: None)
  Receive Date: 20140221
  Receipt Date: 20140221
  Transmission Date: 20141002
  Serious: Yes (Hospitalization)
  Sender: FDA-Public Use
  Company Number: None

PATIENT
  Age: 4 Year
  Sex: Female
  Weight: 12.1 kg

DRUGS (7)
  1. DEXAMETHASONE [Suspect]
  2. MERCAPTOPURINE [Suspect]
  3. METHOTREXATE [Suspect]
  4. SULFAMETHOXAZOLE/TRIMETHOPRIM [Concomitant]
  5. ALBUTEROL [Concomitant]
  6. FANSOPRAZOLE [Concomitant]
  7. POLYETHYLENE GLYCOL [Concomitant]

REACTIONS (15)
  - Hypoxia [None]
  - Tachypnoea [None]
  - Dehydration [None]
  - Listless [None]
  - Hypotension [None]
  - Pulse absent [None]
  - Cardio-respiratory arrest [None]
  - Respiratory distress [None]
  - Vomiting [None]
  - Infection [None]
  - Transfusion reaction [None]
  - Anaemia [None]
  - Lung infiltration [None]
  - Pulmonary mass [None]
  - Upper respiratory tract infection [None]
